FAERS Safety Report 5496844-8 (Version None)
Quarter: 2007Q4

REPORT INFORMATION
  Report Type: 
  Country: None (occurrence: None)
  Receive Date: 20071025
  Receipt Date: 20070827
  Transmission Date: 20080405
  Serious: No
  Sender: FDA-Public Use
  Company Number: A0676641A

PATIENT
  Age: 65 Year
  Sex: Male

DRUGS (14)
  1. ADVAIR DISKUS 100/50 [Suspect]
     Indication: ASTHMA
     Dosage: 1PUFF TWICE PER DAY
     Route: 055
     Dates: start: 20061001
  2. FUROSEMIDE [Concomitant]
  3. ASPIRIN [Concomitant]
  4. AMBIEN [Concomitant]
  5. AVODART [Concomitant]
  6. NOVOLOG [Concomitant]
  7. BACTRIM [Concomitant]
  8. NIFEDIPINE [Concomitant]
  9. METOPROLOL [Concomitant]
  10. PROGRAF [Concomitant]
  11. MAGNESIUM OXIDE [Concomitant]
  12. FLOMAX [Concomitant]
  13. SIMVASTATIN [Concomitant]
  14. MULTIPLE VITAMIN [Concomitant]

REACTIONS (2)
  - DYSPNOEA [None]
  - PHARMACEUTICAL PRODUCT COMPLAINT [None]
